FAERS Safety Report 6663450-9 (Version None)
Quarter: 2010Q2

REPORT INFORMATION
  Report Type: 
  Country: None (occurrence: None)
  Receive Date: 20100401
  Receipt Date: 20100322
  Transmission Date: 20101027
  Serious: Yes (Other)
  Sender: FDA-Public Use
  Company Number: US-PFIZER INC-2010036793

PATIENT
  Age: 38 Year
  Sex: Female

DRUGS (2)
  1. GEODON [Suspect]
     Indication: GENERALISED ANXIETY DISORDER
     Dosage: 20 MG, 2X/DAY
     Route: 048
     Dates: end: 20100101
  2. PROZAC [Suspect]
     Indication: GENERALISED ANXIETY DISORDER
     Dosage: UNK
     Route: 048
     Dates: end: 20100101

REACTIONS (1)
  - HEPATIC ENZYME INCREASED [None]
